FAERS Safety Report 24823398 (Version 1)
Quarter: 2025Q1

REPORT INFORMATION
  Report Type: Spontaneous
  Country: FR (occurrence: FR)
  Receive Date: 20250109
  Receipt Date: 20250109
  Transmission Date: 20250409
  Serious: Yes (Hospitalization)
  Sender: CHEPLAPHARM
  Company Number: None

PATIENT
  Age: 70 Year
  Sex: Male
  Weight: 70 kg

DRUGS (18)
  1. CLONAZEPAM [Suspect]
     Active Substance: CLONAZEPAM
     Indication: Sedation
     Route: 042
     Dates: start: 20240925, end: 20240925
  2. DEXMEDETOMIDINE HYDROCHLORIDE [Suspect]
     Active Substance: DEXMEDETOMIDINE HYDROCHLORIDE
     Indication: Sedation
     Route: 042
     Dates: start: 20240926, end: 20240929
  3. MIDAZOLAM [Suspect]
     Active Substance: MIDAZOLAM
     Indication: Sedation
     Route: 042
     Dates: start: 20240925, end: 20240926
  4. SUFENTANIL [Suspect]
     Active Substance: SUFENTANIL
     Indication: Sedation
     Route: 042
     Dates: start: 20240925, end: 20240928
  5. LAMOTRIGINE [Suspect]
     Active Substance: LAMOTRIGINE
  6. KARDEGIC [Suspect]
     Active Substance: ASPIRIN DL-LYSINE
  7. CLOBAZAM [Suspect]
     Active Substance: CLOBAZAM
  8. RISPERIDONE [Suspect]
     Active Substance: RISPERIDONE
  9. MELATONIN [Suspect]
     Active Substance: MELATONIN
  10. ENOXAPARIN [Suspect]
     Active Substance: ENOXAPARIN
     Dosage: 4000 IU 1/D: THROUGHOUT HOSPITALIZATION?DAILY DOSE: 4000 IU (INTERNATIONAL UNIT)
  11. PIPERACILLIN SODIUM\TAZOBACTAM SODIUM [Suspect]
     Active Substance: PIPERACILLIN SODIUM\TAZOBACTAM SODIUM
  12. LOXAPINE [Suspect]
     Active Substance: LOXAPINE
     Dates: start: 20240926
  13. LOXAPINE [Suspect]
     Active Substance: LOXAPINE
  14. POLYETHYLENE GLYCOLS [Suspect]
     Active Substance: POLYETHYLENE GLYCOLS
  15. NORMACOL [Suspect]
     Active Substance: HERBALS\KARAYA GUM
     Dates: start: 20240930
  16. ACETAMINOPHEN [Suspect]
     Active Substance: ACETAMINOPHEN
  17. POTASSIUM CHLORIDE [Suspect]
     Active Substance: POTASSIUM CHLORIDE
  18. INSULIN HUMAN [Suspect]
     Active Substance: INSULIN HUMAN
     Dates: start: 20240925

REACTIONS (2)
  - Hepatic cytolysis [Recovered/Resolved]
  - Cholestasis [Recovering/Resolving]

NARRATIVE: CASE EVENT DATE: 20240930
